FAERS Safety Report 14998593 (Version 1)
Quarter: 2018Q2

REPORT INFORMATION
  Report Type: Spontaneous
  Country: DE (occurrence: DE)
  Receive Date: 20180612
  Receipt Date: 20180612
  Transmission Date: 20180711
  Serious: Yes (Hospitalization)
  Sender: FDA-Public Use
  Company Number: DE-TEVA-2018-DE-904255

PATIENT
  Age: 73 Year
  Sex: Male

DRUGS (13)
  1. CALCIUM [Concomitant]
     Active Substance: CALCIUM
     Dosage: 1-0-0-0
     Route: 065
  2. SPIOLTO [Concomitant]
     Active Substance: OLODATEROL HYDROCHLORIDE\TIOTROPIUM BROMIDE MONOHYDRATE
     Dosage: 2-0-0-0
     Route: 065
  3. VALSARTAN. [Suspect]
     Active Substance: VALSARTAN
     Dosage: 2-0-0-0
     Route: 065
  4. ELIQUIS [Suspect]
     Active Substance: APIXABAN
     Dosage: 1-0-1-0
     Route: 065
  5. SIMVASTATIN. [Concomitant]
     Active Substance: SIMVASTATIN
     Dosage: 0-0-1-0
     Route: 065
  6. ALLOPURINOL. [Concomitant]
     Active Substance: ALLOPURINOL
     Dosage: 0-0-1-0
     Route: 065
  7. METFORMIN [Concomitant]
     Active Substance: METFORMIN HYDROCHLORIDE
     Dosage: 1-0-1-0
     Route: 065
  8. MIFLONIDE 400MIKROGRAMM [Concomitant]
     Dosage: 1-0-1-0
     Route: 065
  9. NAC 200 [Concomitant]
     Dosage: 1-1-1-0
     Route: 065
  10. DAXAS [Concomitant]
     Active Substance: ROFLUMILAST
     Dosage: 1-0-0-0
     Route: 065
  11. PANTOPRAZOL [Concomitant]
     Active Substance: PANTOPRAZOLE SODIUM
     Dosage: 1-0-0-0
     Route: 065
  12. TORASEMIDE [Suspect]
     Active Substance: TORSEMIDE
     Dosage: 1-1-0-0
     Route: 065
  13. DIGITOXIN [Concomitant]
     Active Substance: DIGITOXIN
     Dosage: 1-0-0-0
     Route: 065

REACTIONS (4)
  - Asthenia [Unknown]
  - General physical health deterioration [Unknown]
  - Hypotension [Unknown]
  - Anaemia [Unknown]
